FAERS Safety Report 6248739-X (Version None)
Quarter: 2009Q2

REPORT INFORMATION
  Report Type: 
  Country: None (occurrence: None)
  Receive Date: 20090629
  Receipt Date: 20090617
  Transmission Date: 20091009
  Serious: Yes (Other)
  Sender: FDA-Public Use
  Company Number: PHHY2009GB25057

PATIENT
  Sex: Female
  Weight: 62 kg

DRUGS (12)
  1. ALISKIREN [Suspect]
     Indication: HYPERTENSION
     Dosage: 150 MG
     Route: 048
     Dates: start: 20080516
  2. ALISKIREN [Suspect]
     Dosage: 300 MG
     Route: 048
     Dates: end: 20080909
  3. PEPTAC [Concomitant]
     Indication: DYSPEPSIA
     Dosage: 10 ML
     Route: 048
     Dates: start: 20010901
  4. ATORVASTATIN CALCIUM [Concomitant]
     Indication: HYPERLIPIDAEMIA
     Dosage: 40 MG
     Route: 048
     Dates: start: 20050801
  5. FUROSEMIDE INTENSOL [Concomitant]
     Indication: HYPERTENSION
     Dosage: 40 MG
     Route: 048
     Dates: start: 20050501
  6. ESOMEPRAZOLE MAGNESIUM [Concomitant]
     Indication: DUODENITIS
     Dosage: 20 MG
     Route: 048
     Dates: start: 20080301
  7. CLOPIDOGREL [Concomitant]
     Indication: TRANSIENT ISCHAEMIC ATTACK
     Dosage: 75 MG
     Route: 048
     Dates: start: 20081101
  8. CANDESARTAN CILEXETIL [Concomitant]
     Indication: HYPERTENSION
     Dosage: 16 MG
     Route: 048
     Dates: start: 20030301
  9. LERCADIP [Concomitant]
     Indication: HYPERTENSION
     Dosage: 10 MG
     Route: 048
     Dates: start: 20010101
  10. MOXONIDINE [Concomitant]
     Indication: HYPERTENSION
     Dosage: 400 MG
     Route: 048
     Dates: start: 20031101
  11. BISOPROLOL FUMARATE [Concomitant]
     Indication: HYPERTENSION
     Dosage: 5 MG
     Route: 048
     Dates: start: 20070801
  12. ACETAMINOPHEN W/ CODEINE [Concomitant]
     Indication: OSTEOARTHRITIS
     Dosage: 2 TABLETS QDS PRN
     Route: 048
     Dates: start: 20070801

REACTIONS (2)
  - BLOOD CREATININE INCREASED [None]
  - RENAL IMPAIRMENT [None]
